FAERS Safety Report 6015262-7 (Version None)
Quarter: 2008Q4

REPORT INFORMATION
  Report Type: 
  Country: None (occurrence: None)
  Receive Date: 20081222
  Receipt Date: 20081211
  Transmission Date: 20090506
  Serious: Yes (Death)
  Sender: FDA-Public Use
  Company Number: JP-NOVOPROD-282324

PATIENT
  Age: 85 Year
  Sex: Female

DRUGS (1)
  1. NOVOLIN R [Suspect]
     Indication: DRUG USE FOR UNKNOWN INDICATION
     Dosage: 400 IU, UNK
     Route: 058

REACTIONS (2)
  - HYPOGLYCAEMIA [None]
  - INTENTIONAL OVERDOSE [None]
